FAERS Safety Report 7395794-X (Version None)
Quarter: 2011Q2

REPORT INFORMATION
  Report Type: 
  Country: None (occurrence: None)
  Receive Date: 20110405
  Receipt Date: 20110328
  Transmission Date: 20111010
  Serious: Yes (Hospitalization, Other)
  Sender: FDA-Public Use
  Company Number: US-MERCK-0902USA00994

PATIENT
  Age: 80 Year
  Sex: Female

DRUGS (3)
  1. FOSAMAX [Suspect]
     Indication: OSTEOPOROSIS
     Route: 048
     Dates: start: 20041101, end: 20080630
  2. FOSAMAX [Suspect]
     Indication: BONE DENSITY DECREASED
     Route: 048
     Dates: start: 20041101, end: 20080630
  3. ACTONEL [Concomitant]
     Route: 048

REACTIONS (70)
  - INTRACRANIAL ANEURYSM [None]
  - SUBARACHNOID HAEMORRHAGE [None]
  - BONE DENSITY DECREASED [None]
  - DIVERTICULUM [None]
  - DIARRHOEA [None]
  - DENTAL CARIES [None]
  - RHINORRHOEA [None]
  - ROTATOR CUFF SYNDROME [None]
  - OSTEOPENIA [None]
  - SPINAL DEFORMITY [None]
  - HYPERTENSION [None]
  - BITE [None]
  - PNEUMONIA [None]
  - MENTAL STATUS CHANGES [None]
  - CONVULSION [None]
  - BRONCHITIS [None]
  - URINE ODOUR ABNORMAL [None]
  - HAEMATOMA [None]
  - HAEMATEMESIS [None]
  - DEHYDRATION [None]
  - FUNGAL INFECTION [None]
  - FACE INJURY [None]
  - JOINT SWELLING [None]
  - BACK PAIN [None]
  - ATRIAL FIBRILLATION [None]
  - APHASIA [None]
  - FLUID OVERLOAD [None]
  - RENAL FAILURE ACUTE [None]
  - CATARACT [None]
  - DRUG HYPERSENSITIVITY [None]
  - OSTEOARTHRITIS [None]
  - WEIGHT DECREASED [None]
  - ARTHRALGIA [None]
  - VIRAL INFECTION [None]
  - POLLAKIURIA [None]
  - UPPER RESPIRATORY TRACT INFECTION [None]
  - MASTICATION DISORDER [None]
  - GASTROINTESTINAL HAEMORRHAGE [None]
  - APHTHOUS STOMATITIS [None]
  - HAEMATOMA EVACUATION [None]
  - RASH [None]
  - HYDROCEPHALUS [None]
  - FALL [None]
  - CONFUSIONAL STATE [None]
  - OSTEOMALACIA [None]
  - ORAL TORUS [None]
  - HYPOGLYCAEMIA [None]
  - GINGIVAL RECESSION [None]
  - CONTUSION [None]
  - ANAEMIA [None]
  - RESPIRATORY FAILURE [None]
  - METABOLIC ENCEPHALOPATHY [None]
  - BONE DISORDER [None]
  - ASPARTATE AMINOTRANSFERASE INCREASED [None]
  - OSTEONECROSIS OF JAW [None]
  - METABOLIC DISORDER [None]
  - TOOTH EROSION [None]
  - EXOSTOSIS [None]
  - UNRESPONSIVE TO STIMULI [None]
  - MOUTH ULCERATION [None]
  - LYMPHADENOPATHY [None]
  - HYPOALBUMINAEMIA [None]
  - CEREBROVASCULAR SPASM [None]
  - TREMOR [None]
  - WHITE BLOOD CELL COUNT INCREASED [None]
  - CHEST PAIN [None]
  - POOR QUALITY SLEEP [None]
  - INTRACRANIAL PRESSURE INCREASED [None]
  - FATIGUE [None]
  - CEREBRAL DISORDER [None]
